FAERS Safety Report 21791145 (Version 1)
Quarter: 2022Q4

REPORT INFORMATION
  Report Type: Spontaneous
  Country: US (occurrence: US)
  Receive Date: 20221228
  Receipt Date: 20221228
  Transmission Date: 20230113
  Serious: Yes (Other)
  Sender: FDA-Public Use
  Company Number: US-CLOVIS ONCOLOGY-CLO-2022-001036

PATIENT
  Sex: Female

DRUGS (1)
  1. RUBRACA [Suspect]
     Active Substance: RUCAPARIB CAMSYLATE
     Indication: Ovarian cancer stage IV
     Dosage: 400 MILLIGRAM, BID
     Dates: start: 2019, end: 20220909

REACTIONS (4)
  - Ovarian cancer recurrent [Unknown]
  - Pain [Unknown]
  - Headache [Not Recovered/Not Resolved]
  - Malaise [Unknown]
